FAERS Safety Report 9547478 (Version 1)
Quarter: 2013Q2

REPORT INFORMATION
  Report Type: Spontaneous
  Country: US (occurrence: None)
  Receive Date: 20130606
  Receipt Date: 20130606
  Transmission Date: 20140414
  Serious: Yes (Other)
  Sender: FDA-Public Use
  Company Number: 163-POMAL-13041014

PATIENT
  Age: 64 Year
  Sex: Female
  Weight: 63.6 kg

DRUGS (9)
  1. POMALYST [Suspect]
     Indication: PLASMA CELL MYELOMA
     Route: 048
     Dates: start: 201302
  2. VELCADE(BORTEZOMIB)(INJECTION) [Concomitant]
  3. EFFEXORXR(VENLAFAXINE HYDROCHLORIDE)(UKNOWN) [Concomitant]
  4. MIV(MVI)(UKNOWN) [Concomitant]
  5. PRAVASTATIN(PRAVASTATIN) [Concomitant]
  6. PREMARIN(ESTROGENS CONJUGATED) [Concomitant]
  7. PRILOSECT(OMEPRAZOLE) [Concomitant]
  8. PROCHLORPERAZINE(PROCHLORPERAZINE) [Concomitant]
  9. DEXAMETHASONE(DEXAMETHASONE) [Concomitant]

REACTIONS (1)
  - Platelet count decreased [None]
